FAERS Safety Report 6244457-2 (Version None)
Quarter: 2009Q2

REPORT INFORMATION
  Report Type: 
  Country: None (occurrence: None)
  Receive Date: 20090623
  Receipt Date: 20090623
  Transmission Date: 20091009
  Serious: Yes (Other)
  Sender: FDA-Public Use
  Company Number: None

PATIENT
  Age: 62 Year
  Sex: Female
  Weight: 79.3795 kg

DRUGS (1)
  1. BONIVA [Suspect]
     Indication: OSTEOARTHRITIS
     Dosage: 150 MG ORAL (047) MONTHLY
     Route: 048
     Dates: start: 20090603

REACTIONS (3)
  - BACK PAIN [None]
  - BONE PAIN [None]
  - INFLUENZA LIKE ILLNESS [None]
